FAERS Safety Report 14693175 (Version 1)
Quarter: 2018Q1

REPORT INFORMATION
  Report Type: Spontaneous
  Country: US (occurrence: US)
  Receive Date: 20180329
  Receipt Date: 20180329
  Transmission Date: 20180509
  Serious: Yes (Hospitalization)
  Sender: FDA-Public Use
  Company Number: US-LPDUSPRD-20180420

PATIENT
  Age: 75 Year
  Sex: Male

DRUGS (5)
  1. NOREPINEPHRINE. [Suspect]
     Active Substance: NOREPINEPHRINE
     Dosage: 1 TO 30 MCG/MIN
     Route: 065
  2. DOPAMINE HCL INJECTION, USP (1305-25) [Suspect]
     Active Substance: DOPAMINE HYDROCHLORIDE
     Dosage: 2 TO 20 MCG/KG/MIN
     Route: 065
  3. FLUIDS [Concomitant]
     Active Substance: UNSPECIFIED INGREDIENT
     Dosage: UNKNOWN
     Route: 042
  4. ANTIBIOTICS [Concomitant]
     Active Substance: UNSPECIFIED INGREDIENT
     Dosage: UNKNOWN
     Route: 065
  5. VASOPRESSIN INJECTION, USP (0410-10) [Suspect]
     Active Substance: VASOPRESSIN
     Dosage: 2.4 UNITS/HOUR
     Route: 042

REACTIONS (2)
  - Gangrene [Recovering/Resolving]
  - Off label use [Recovered/Resolved]
